FAERS Safety Report 13951759 (Version 1)
Quarter: 2017Q3

REPORT INFORMATION
  Report Type: Spontaneous
  Country: US (occurrence: US)
  Receive Date: 20170908
  Receipt Date: 20170908
  Transmission Date: 20171128
  Serious: Yes (Hospitalization, Other)
  Sender: FDA-Public Use
  Company Number: US-PRINSTON PHARMACEUTICAL INC.-2017PRN00425

PATIENT
  Age: 61 Year
  Sex: Female
  Weight: 41.72 kg

DRUGS (1)
  1. LEVETIRACETAM. [Suspect]
     Active Substance: LEVETIRACETAM
     Indication: EPILEPSY
     Dosage: 125 MG, 2X/DAY
     Route: 048
     Dates: start: 201707

REACTIONS (7)
  - Blood glucose increased [Unknown]
  - Contusion [Recovered/Resolved]
  - Postictal state [Recovered/Resolved]
  - Seizure [Recovered/Resolved]
  - Product substitution issue [Unknown]
  - Fall [Recovered/Resolved]
  - Myocardial necrosis marker increased [Unknown]

NARRATIVE: CASE EVENT DATE: 201707
